FAERS Safety Report 10643510 (Version 1)
Quarter: 2014Q4

REPORT INFORMATION
  Report Type: Spontaneous
  Country: US (occurrence: US)
  Receive Date: 20141210
  Receipt Date: 20141210
  Transmission Date: 20150529
  Serious: No
  Sender: FDA-Public Use
  Company Number: US-GILEAD-2014-0125524

PATIENT
  Age: 57 Year
  Sex: Male

DRUGS (2)
  1. OLYSIO [Suspect]
     Active Substance: SIMEPREVIR
     Indication: PRODUCT USED FOR UNKNOWN INDICATION
     Dosage: UNK
     Route: 065
  2. SOVALDI [Suspect]
     Active Substance: SOFOSBUVIR
     Indication: PRODUCT USED FOR UNKNOWN INDICATION
     Dosage: UNK
     Route: 065

REACTIONS (1)
  - Incorrect product storage [Unknown]
